FAERS Safety Report 9584226 (Version 1)
Quarter: 2013Q4

REPORT INFORMATION
  Report Type: Spontaneous
  Country: US (occurrence: US)
  Receive Date: 20131002
  Receipt Date: 20131002
  Transmission Date: 20140711
  Serious: No
  Sender: FDA-Public Use
  Company Number: US-AMGEN-USASP2013052008

PATIENT
  Age: 45 Year
  Sex: Male

DRUGS (3)
  1. ENBREL [Suspect]
     Indication: PRODUCT USED FOR UNKNOWN INDICATION
     Dosage: 50 MG, 2 TIMES/WK
     Route: 058
  2. HUMIRA [Concomitant]
     Dosage: UNK, 40MG/0.8
  3. LEVOXYL [Concomitant]
     Dosage: 100 MUG, UNK

REACTIONS (1)
  - Drug tolerance [Unknown]
